FAERS Safety Report 5215421-7 (Version None)
Quarter: 2007Q1

REPORT INFORMATION
  Report Type: 
  Country: None (occurrence: None)
  Receive Date: 20070116
  Receipt Date: 20070102
  Transmission Date: 20070707
  Serious: Yes (Death)
  Sender: FDA-Public Use
  Company Number: VISP-NO-0612S-0810

PATIENT
  Age: 30 Year
  Sex: Female

DRUGS (1)
  1. VISIPAQUE [Suspect]
     Indication: ROAD TRAFFIC ACCIDENT
     Dosage: 20 ML, SINGLE DOSE, I.V.
     Dates: start: 20061226, end: 20061226

REACTIONS (2)
  - CARDIO-RESPIRATORY ARREST [None]
  - CIRCULATORY COLLAPSE [None]
